FAERS Safety Report 4867481-0 (Version None)
Quarter: 2005Q4

REPORT INFORMATION
  Report Type: 
  Country: None (occurrence: None)
  Receive Date: 20051228
  Receipt Date: 20050926
  Transmission Date: 20060501
  Serious: Yes (Hospitalization)
  Sender: FDA-Public Use
  Company Number: US-MERCK-0509USA04048

PATIENT
  Age: 62 Year
  Sex: Female
  Weight: 95 kg

DRUGS (19)
  1. VIOXX [Suspect]
     Indication: PAIN
     Route: 048
     Dates: start: 19991025, end: 20040930
  2. VIOXX [Suspect]
     Indication: OSTEOARTHRITIS
     Route: 048
     Dates: start: 19991025, end: 20040930
  3. SYNTHROID [Concomitant]
     Indication: THYROID DISORDER
     Route: 065
     Dates: start: 19991001, end: 20041101
  4. SYNTHROID [Concomitant]
     Route: 048
     Dates: start: 19991001, end: 20041101
  5. ACETAMINOPHEN AND HYDROCODONE BITARTRATE [Concomitant]
     Indication: PAIN
     Route: 065
     Dates: start: 19991001, end: 20041101
  6. LASIX [Concomitant]
     Indication: FLUID RETENTION
     Route: 065
     Dates: start: 19991001, end: 20000501
  7. LASIX [Concomitant]
     Route: 065
     Dates: start: 20001101, end: 20001201
  8. PREVACID [Concomitant]
     Indication: DYSPEPSIA
     Route: 065
     Dates: start: 19991001, end: 20050301
  9. CLIPOXIDE [Concomitant]
     Indication: GASTRIC DISORDER
     Route: 065
     Dates: start: 19991001, end: 20000101
  10. PROPULSID [Concomitant]
     Indication: GASTRIC DISORDER
     Route: 065
     Dates: start: 19991001, end: 20000801
  11. PROPULSID [Concomitant]
     Route: 048
     Dates: start: 19991001, end: 20000801
  12. DILANTIN [Concomitant]
     Indication: CONVULSION
     Route: 065
     Dates: start: 19991001, end: 20031001
  13. DILANTIN [Concomitant]
     Route: 065
     Dates: start: 20040201, end: 20050201
  14. DILANTIN [Concomitant]
     Route: 065
     Dates: start: 19991001, end: 20031001
  15. PRILOSEC [Concomitant]
     Indication: DYSPEPSIA
     Route: 065
     Dates: start: 19991101, end: 19991201
  16. HYDROCHLOROTHIAZIDE AND TRIAMTERENE [Concomitant]
     Indication: HYPERTENSION
     Route: 065
     Dates: start: 19991201, end: 20050201
  17. ULTRAM [Concomitant]
     Indication: PAIN
     Route: 065
     Dates: start: 20000101, end: 20000201
  18. CYCLOBENZAPRINE HYDROCHLORIDE [Concomitant]
     Indication: PAIN
     Route: 065
     Dates: start: 19991201, end: 20000101
  19. NOLVADEX [Suspect]
     Indication: BREAST CANCER
     Route: 065
     Dates: start: 19991001, end: 20000101

REACTIONS (8)
  - ANKLE FRACTURE [None]
  - DEEP VEIN THROMBOSIS [None]
  - FALL [None]
  - HEART RATE IRREGULAR [None]
  - IRRITABLE BOWEL SYNDROME [None]
  - JOINT INJURY [None]
  - PULMONARY EMBOLISM [None]
  - ULCER [None]
